FAERS Safety Report 5381339-2 (Version None)
Quarter: 2007Q2

REPORT INFORMATION
  Report Type: 
  Country: None (occurrence: None)
  Receive Date: 20070629
  Receipt Date: 20061103
  Transmission Date: 20071010
  Serious: Yes (Other)
  Sender: FDA-Public Use
  Company Number: 2006134800

PATIENT
  Age: 47 Year
  Sex: Female
  Weight: 77.1115 kg

DRUGS (3)
  1. ZOLOFT [Suspect]
     Indication: ANXIETY
     Dosage: 100 MG (100 MG, 1 IN 1 D)
  2. ZOLOFT [Suspect]
     Indication: DEPRESSION
     Dosage: 100 MG (100 MG, 1 IN 1 D)
  3. COPAXONE [Concomitant]

REACTIONS (1)
  - MYOCARDIAL INFARCTION [None]
